FAERS Safety Report 25905020 (Version 4)
Quarter: 2025Q4

REPORT INFORMATION
  Report Type: Spontaneous
  Country: US (occurrence: US)
  Receive Date: 20251010
  Receipt Date: 20251201
  Transmission Date: 20260118
  Serious: Yes (Other)
  Sender: CATALYST PHARMA
  Company Number: US-CATALYST PHARMACEUTICALS-US-CATA-25-01447

PATIENT
  Age: 8 Year
  Sex: Male
  Weight: 34.014 kg

DRUGS (7)
  1. AGAMREE [Suspect]
     Active Substance: VAMOROLONE
     Indication: Duchenne muscular dystrophy
     Dosage: 1.2 ML DAILY
     Route: 048
     Dates: start: 20240522
  2. AGAMREE [Suspect]
     Active Substance: VAMOROLONE
     Dosage: 4.2 ML ONCE A DAY
     Route: 048
     Dates: start: 20250523
  3. ALBUTEROL SULFATE [Concomitant]
     Active Substance: ALBUTEROL SULFATE
     Indication: Asthma
     Dosage: 2 PUFFS AS NEEDED
     Route: 055
  4. FLOVENT HFA [Concomitant]
     Active Substance: FLUTICASONE PROPIONATE
     Indication: Asthma
     Dosage: 2 PUFFS TWICE A DAY
     Route: 055
  5. VITAMIN D3 [Concomitant]
     Active Substance: CHOLECALCIFEROL
     Indication: Bone disorder
     Dosage: 2000 UNITS DAILY
     Route: 065
  6. VITAMIN D3 [Concomitant]
     Active Substance: CHOLECALCIFEROL
     Indication: Prophylaxis
  7. DUVYZAT [Concomitant]
     Active Substance: GIVINOSTAT
     Indication: Duchenne muscular dystrophy
     Dosage: 3.5 ML TWICE A DAY
     Route: 048

REACTIONS (4)
  - Duchenne muscular dystrophy [Not Recovered/Not Resolved]
  - Disease progression [Not Recovered/Not Resolved]
  - Gait inability [Not Recovered/Not Resolved]
  - Dysstasia [Not Recovered/Not Resolved]

NARRATIVE: CASE EVENT DATE: 20250901
